FAERS Safety Report 14248332 (Version 2)
Quarter: 2017Q4

REPORT INFORMATION
  Report Type: Spontaneous
  Country: NL (occurrence: NL)
  Receive Date: 20171204
  Receipt Date: 20171218
  Transmission Date: 20180321
  Serious: Yes (Other)
  Sender: FDA-Public Use
  Company Number: NL-009507513-1711NLD013582

PATIENT
  Sex: Female

DRUGS (2)
  1. IMPLANON [Suspect]
     Active Substance: ETONOGESTREL
     Dosage: 1 DF, UNK
     Route: 059
     Dates: start: 20171129
  2. IMPLANON [Suspect]
     Active Substance: ETONOGESTREL
     Dosage: UNK
     Route: 059
     Dates: start: 2016, end: 20171129

REACTIONS (4)
  - Amenorrhoea [Recovered/Resolved]
  - Gastrectomy [Unknown]
  - Menstruation normal [Unknown]
  - Endometrial thickening [Unknown]

NARRATIVE: CASE EVENT DATE: 2017
